FAERS Safety Report 7511625-9 (Version None)
Quarter: 2011Q2

REPORT INFORMATION
  Report Type: 
  Country: None (occurrence: None)
  Receive Date: 20110531
  Receipt Date: 20110525
  Transmission Date: 20111010
  Serious: Yes (Hospitalization, Other)
  Sender: FDA-Public Use
  Company Number: US-PFIZER INC-2010154609

PATIENT
  Sex: Male

DRUGS (5)
  1. CHANTIX [Suspect]
     Indication: SMOKING CESSATION THERAPY
     Dosage: 1 MG, UNK
     Dates: start: 20090521, end: 20090617
  2. ATENOLOL [Concomitant]
     Indication: HYPERTENSION
     Dosage: UNK
     Dates: start: 20050101
  3. LEVAQUIN [Concomitant]
     Dosage: UNK
     Dates: start: 20090519
  4. HYZAAR [Concomitant]
     Indication: HYPERTENSION
     Dosage: UNK
     Dates: start: 20050101
  5. SALBUTAMOL [Concomitant]
     Dosage: UNK
     Dates: start: 20090519

REACTIONS (8)
  - JOINT INJURY [None]
  - ABNORMAL BEHAVIOUR [None]
  - EMOTIONAL DISTRESS [None]
  - AGGRESSION [None]
  - IMPAIRED DRIVING ABILITY [None]
  - CONCUSSION [None]
  - LOSS OF CONSCIOUSNESS [None]
  - ROAD TRAFFIC ACCIDENT [None]
